FAERS Safety Report 6128742-0 (Version None)
Quarter: 2009Q1

REPORT INFORMATION
  Report Type: 
  Country: None (occurrence: None)
  Receive Date: 20090323
  Receipt Date: 20090313
  Transmission Date: 20090719
  Serious: Yes (Death)
  Sender: FDA-Public Use
  Company Number: US-PFIZER INC-2009173141

PATIENT
  Sex: Male
  Weight: 70.748 kg

DRUGS (2)
  1. CAMPTOSAR [Suspect]
     Indication: OESOPHAGEAL CANCER METASTATIC
     Dosage: 240 MG EACH WEEK FOR 2 WEEKS, THEN 1 WEEK OFF
     Dates: start: 20081110, end: 20081117
  2. CAMPTOSAR [Suspect]
     Dosage: 240 MG EACH WEEK FOR 2 WEEKS, THEN 1 WEEK OFF
     Dates: start: 20081211, end: 20081218

REACTIONS (1)
  - DEATH [None]
